FAERS Safety Report 6295924-7 (Version None)
Quarter: 2009Q3

REPORT INFORMATION
  Report Type: 
  Country: None (occurrence: None)
  Receive Date: 20090804
  Receipt Date: 20090727
  Transmission Date: 20100115
  Serious: Yes (Hospitalization, Other)
  Sender: FDA-Public Use
  Company Number: DE-JNJFOC-20090708172

PATIENT
  Age: 28 Year
  Sex: Female
  Weight: 56 kg

DRUGS (2)
  1. REMICADE [Suspect]
     Indication: COLITIS ULCERATIVE
     Route: 042
  2. CLAVERSAL [Concomitant]

REACTIONS (1)
  - SARCOIDOSIS [None]
